FAERS Safety Report 4955220-4 (Version None)
Quarter: 2006Q1

REPORT INFORMATION
  Report Type: 
  Country: None (occurrence: None)
  Receive Date: 20060328
  Receipt Date: 20060317
  Transmission Date: 20060701
  Serious: Yes (Congenital Anomaly, Other)
  Sender: FDA-Public Use
  Company Number: PHFR2006GB01177

PATIENT
  Sex: Male
  Weight: 2.25 kg

DRUGS (5)
  1. SIMULECT [Suspect]
     Route: 064
  2. TACROLIMUS [Concomitant]
     Route: 064
  3. AZATHIOPRINE [Concomitant]
     Route: 064
  4. ASPIRIN [Concomitant]
     Route: 064
  5. FOLIC ACID [Concomitant]
     Route: 064

REACTIONS (5)
  - CONGENITAL PYELOCALIECTASIS [None]
  - DRUG EXPOSURE DURING PREGNANCY [None]
  - INDUCED LABOUR [None]
  - PREMATURE BABY [None]
  - RENAL IMPAIRMENT [None]
